FAERS Safety Report 9921177 (Version 1)
Quarter: 2014Q1

REPORT INFORMATION
  Report Type: Report from Study
  Country: US (occurrence: US)
  Receive Date: 20140225
  Receipt Date: 20140225
  Transmission Date: 20141002
  Serious: Yes (Hospitalization)
  Sender: FDA-Public Use
  Company Number: US-ROCHE-1338389

PATIENT
  Sex: Male
  Weight: 67.19 kg

DRUGS (27)
  1. LUCENTIS [Suspect]
     Indication: DIABETIC RETINAL OEDEMA
     Route: 050
  2. LUCENTIS [Suspect]
     Indication: RETINAL OEDEMA
     Route: 050
     Dates: start: 20120907
  3. LUCENTIS [Suspect]
     Indication: DIABETIC RETINOPATHY
  4. AVASTIN [Suspect]
     Indication: DIABETIC RETINAL OEDEMA
     Dosage: OD
     Route: 050
     Dates: start: 20110413
  5. NIFEREX (UNITED STATES) [Concomitant]
  6. LASIX [Concomitant]
  7. LANTUS [Concomitant]
  8. PERCOCET [Concomitant]
  9. LOPRESSOR [Concomitant]
  10. ONGLYZA [Concomitant]
  11. TYLENOL [Concomitant]
  12. ASPIRIN [Concomitant]
     Route: 065
  13. ASPIRIN [Concomitant]
     Route: 065
  14. FOLIC ACID [Concomitant]
  15. CRESTOR [Concomitant]
  16. MILK OF MAGNESIA [Concomitant]
  17. VICTOZA [Concomitant]
     Route: 065
  18. EYLEA [Concomitant]
     Indication: DIABETIC RETINAL OEDEMA
     Route: 031
  19. PRED FORTE [Concomitant]
     Dosage: OS
     Route: 047
  20. APRACLONIDINE [Concomitant]
     Dosage: OD
     Route: 047
  21. FUROSEMIDE [Concomitant]
  22. GLIPIZIDE [Concomitant]
  23. PLAVIX [Concomitant]
  24. AVODART [Concomitant]
  25. LEFLUNOMID [Concomitant]
     Route: 065
  26. OCUFLOX [Concomitant]
  27. METHOTREXATE [Concomitant]

REACTIONS (5)
  - Coronary artery bypass [Unknown]
  - Vision blurred [Unknown]
  - Visual acuity reduced [Unknown]
  - Photophobia [Unknown]
  - Off label use [Unknown]
